FAERS Safety Report 19815510 (Version 4)
Quarter: 2021Q4

REPORT INFORMATION
  Report Type: Report from Study
  Country: IN (occurrence: IN)
  Receive Date: 20210910
  Receipt Date: 20211001
  Transmission Date: 20220303
  Serious: Yes (Death)
  Sender: FDA-Public Use
  Company Number: IN-PFIZER INC-202101170703

PATIENT
  Age: 69 Year
  Sex: Female
  Weight: 34.1 kg

DRUGS (4)
  1. DACOMITINIB [Suspect]
     Active Substance: DACOMITINIB
     Indication: Non-small cell lung cancer metastatic
     Dosage: 45 MG, 1X/DAY
     Route: 048
     Dates: start: 20210710, end: 20210815
  2. DACOMITINIB [Suspect]
     Active Substance: DACOMITINIB
     Dosage: 30 MG, 1X/DAY
     Route: 048
     Dates: start: 20210821, end: 20210903
  3. CCM [Concomitant]
     Indication: Hypocalcaemia
     Dosage: UNK, 1X/DAY
     Route: 048
     Dates: start: 20210906, end: 20210906
  4. BUDESONIDE [Concomitant]
     Active Substance: BUDESONIDE
     Indication: Hypokalaemia
     Dosage: 5 ML, 3X/DAY
     Route: 048
     Dates: start: 20210906, end: 20210906

REACTIONS (1)
  - Death [Fatal]

NARRATIVE: CASE EVENT DATE: 20210907
